FAERS Safety Report 6838890-5 (Version None)
Quarter: 2010Q3

REPORT INFORMATION
  Report Type: 
  Country: None (occurrence: None)
  Receive Date: 20100713
  Receipt Date: 20070720
  Transmission Date: 20110219
  Serious: No
  Sender: FDA-Public Use
  Company Number: US-PFIZER INC-2007045727

PATIENT
  Sex: Female
  Weight: 70.3 kg

DRUGS (7)
  1. CHANTIX [Suspect]
     Indication: NICOTINE DEPENDENCE
     Dosage: EVERY DAY
     Dates: start: 20070501
  2. FENTANYL [Interacting]
     Indication: BACK PAIN
  3. WELLBUTRIN [Interacting]
  4. ANTIDEPRESSANTS [Concomitant]
  5. ZANAFLEX [Concomitant]
  6. XANAX [Concomitant]
  7. OXYCONTIN [Concomitant]

REACTIONS (2)
  - DRUG INTERACTION [None]
  - NERVOUSNESS [None]
